FAERS Safety Report 11468214 (Version 22)
Quarter: 2017Q2

REPORT INFORMATION
  Report Type: Spontaneous
  Country: US (occurrence: US)
  Receive Date: 20150908
  Receipt Date: 20170613
  Transmission Date: 20170829
  Serious: Yes (Hospitalization, Other)
  Sender: FDA-Public Use
  Company Number: US-SA-2015SA132787

PATIENT
  Age: 70 Year
  Sex: Female

DRUGS (27)
  1. ERYTHROMYCIN. [Suspect]
     Active Substance: ERYTHROMYCIN
     Indication: INFECTION
     Route: 065
  2. XARELTO [Interacting]
     Active Substance: RIVAROXABAN
     Route: 065
  3. SYNTHROID [Concomitant]
     Active Substance: LEVOTHYROXINE SODIUM
     Indication: THYROID DISORDER
  4. ULTRAM [Concomitant]
     Active Substance: TRAMADOL HYDROCHLORIDE
  5. ESTRACE [Concomitant]
     Active Substance: ESTRADIOL
  6. VITAMIN B12 [Concomitant]
     Active Substance: CYANOCOBALAMIN
  7. MULTAQ [Interacting]
     Active Substance: DRONEDARONE
     Indication: ATRIAL FIBRILLATION
     Route: 065
     Dates: start: 20150826
  8. DEMEROL [Suspect]
     Active Substance: MEPERIDINE HYDROCHLORIDE
     Indication: BACK PAIN
     Route: 065
     Dates: start: 20150824
  9. MULTAQ [Suspect]
     Active Substance: DRONEDARONE
     Indication: ATRIAL FIBRILLATION
     Route: 065
     Dates: start: 201501, end: 20150825
  10. DIGOXIN. [Interacting]
     Active Substance: DIGOXIN
     Route: 065
  11. EFFIENT [Concomitant]
     Active Substance: PRASUGREL HYDROCHLORIDE
     Indication: STENT PLACEMENT
  12. BABY ASPIRIN [Concomitant]
     Active Substance: ASPIRIN
     Indication: STENT PLACEMENT
  13. NEURONTIN [Concomitant]
     Active Substance: GABAPENTIN
     Route: 065
  14. IMDUR [Interacting]
     Active Substance: ISOSORBIDE MONONITRATE
     Route: 065
  15. BIOTIN [Concomitant]
     Active Substance: BIOTIN
  16. MACROBID [Concomitant]
     Active Substance: NITROFURANTOIN\NITROFURANTOIN MONOHYDRATE
  17. COZAAR [Concomitant]
     Active Substance: LOSARTAN POTASSIUM
  18. LIPITOR [Interacting]
     Active Substance: ATORVASTATIN CALCIUM
     Route: 065
  19. PRAVASTATIN. [Concomitant]
     Active Substance: PRAVASTATIN
     Indication: BLOOD CHOLESTEROL
     Route: 065
  20. ATENOLOL. [Concomitant]
     Active Substance: ATENOLOL
     Indication: BLOOD PRESSURE MEASUREMENT
     Route: 065
  21. MONISTAT [Concomitant]
     Active Substance: MICONAZOLE NITRATE
  22. DEMEROL [Suspect]
     Active Substance: MEPERIDINE HYDROCHLORIDE
     Indication: BACK PAIN
     Route: 042
  23. TORADOL [Suspect]
     Active Substance: KETOROLAC TROMETHAMINE
     Indication: BACK PAIN
     Route: 065
  24. EFFIENT [Concomitant]
     Active Substance: PRASUGREL HYDROCHLORIDE
     Indication: THROMBOSIS PROPHYLAXIS
  25. LINCOCIN [Concomitant]
     Active Substance: LINCOMYCIN
     Indication: INFECTION
     Route: 042
  26. XANAX [Concomitant]
     Active Substance: ALPRAZOLAM
  27. CEFTIN [Concomitant]
     Active Substance: CEFUROXIME AXETIL
     Dates: start: 20160107

REACTIONS (34)
  - Arthralgia [Unknown]
  - Hyperhidrosis [Unknown]
  - Dysuria [Not Recovered/Not Resolved]
  - Migraine [Unknown]
  - Fungal infection [Unknown]
  - Fibromyalgia [Unknown]
  - Oropharyngeal pain [Not Recovered/Not Resolved]
  - Respiratory tract congestion [Not Recovered/Not Resolved]
  - Kidney infection [Not Recovered/Not Resolved]
  - Infection [Unknown]
  - Urinary tract infection [Not Recovered/Not Resolved]
  - Urine abnormality [Not Recovered/Not Resolved]
  - Bladder pain [Recovering/Resolving]
  - Angina pectoris [Unknown]
  - Arrhythmia [Unknown]
  - Bacterial infection [Unknown]
  - Drug interaction [Unknown]
  - Heart rate decreased [Unknown]
  - Atrial fibrillation [Recovered/Resolved]
  - Therapeutic response decreased [Unknown]
  - Back pain [Unknown]
  - Muscle spasms [Unknown]
  - Sinus congestion [Unknown]
  - Tachycardia [Recovered/Resolved]
  - Haemoptysis [Unknown]
  - Palpitations [Recovered/Resolved]
  - Blood cholesterol [Unknown]
  - Blood urine present [Not Recovered/Not Resolved]
  - Drug dose omission [Unknown]
  - Cardiac disorder [Unknown]
  - Blister [Unknown]
  - Bacterial vulvovaginitis [Unknown]
  - Wrist fracture [Unknown]
  - Cystitis [Not Recovered/Not Resolved]

NARRATIVE: CASE EVENT DATE: 2015
